FAERS Safety Report 4830434-2 (Version None)
Quarter: 2005Q4

REPORT INFORMATION
  Report Type: 
  Country: None (occurrence: None)
  Receive Date: 20051117
  Receipt Date: 20051020
  Transmission Date: 20060501
  Serious: Yes (Hospitalization)
  Sender: FDA-Public Use
  Company Number: US-AMGEN-KDL155213

PATIENT
  Sex: Male

DRUGS (3)
  1. ENBREL [Suspect]
     Indication: RHEUMATOID ARTHRITIS
     Route: 058
     Dates: start: 20050701, end: 20050821
  2. PLAQUENIL [Concomitant]
  3. SULFASALAZINE [Concomitant]

REACTIONS (3)
  - ABDOMINAL ABSCESS [None]
  - ARTHRALGIA [None]
  - MUSCULOSKELETAL STIFFNESS [None]
